FAERS Safety Report 7875041-2 (Version None)
Quarter: 2011Q4

REPORT INFORMATION
  Report Type: 
  Country: None (occurrence: None)
  Receive Date: 20111031
  Receipt Date: 20111021
  Transmission Date: 20120403
  Serious: Yes (Hospitalization)
  Sender: FDA-Public Use
  Company Number: US-BRISTOL-MYERS SQUIBB COMPANY-13919469

PATIENT
  Age: 69 Year
  Sex: Male
  Weight: 85 kg

DRUGS (2)
  1. CISPLATIN [Suspect]
     Indication: HEAD AND NECK CANCER
     Dosage: DAY 22 WAS HELD 17-SEP-07 DUE TO NEUTROPENIA. LAST DOSE ON 27AUG2007
     Dates: start: 20070822
  2. ERBITUX [Suspect]
     Indication: HEAD AND NECK CANCER
     Dosage: HELD 24-SEP-07 DUE TO HOSPITALIZATION.LAST DOSE ON 17SEP2007
     Dates: start: 20070822

REACTIONS (8)
  - STOMATITIS [None]
  - NEUTROPHIL COUNT DECREASED [None]
  - ORAL PAIN [None]
  - RADIATION MUCOSITIS [None]
  - WEIGHT DECREASED [None]
  - WHITE BLOOD CELL COUNT DECREASED [None]
  - OROPHARYNGEAL PAIN [None]
  - RASH MACULO-PAPULAR [None]
